FAERS Safety Report 10502699 (Version 1)
Quarter: 2014Q4

REPORT INFORMATION
  Report Type: Spontaneous
  Country: US (occurrence: None)
  Receive Date: 20141003
  Receipt Date: 20141003
  Transmission Date: 20150528
  Serious: Yes (Other)
  Sender: FDA-Public Use
  Company Number: US-H14001-14-00850

PATIENT
  Age: 42 Year
  Sex: Male

DRUGS (6)
  1. DIVALPROEX SODIUM (VALPROATE GEMISODIUM) [Concomitant]
  2. TRIHEXYPHENIDYL (TRIHEXYPHENIDYL) (TRIHEXYPHENIDYL) [Concomitant]
  3. TRAZODONE [Concomitant]
     Active Substance: TRAZODONE HYDROCHLORIDE
  4. CLONAZEPAM (CLONAZEPAM) (CLONAZEPAM) [Concomitant]
     Active Substance: CLONAZEPAM
  5. TESTOSTERONE CIPIONATE [Suspect]
     Active Substance: TESTOSTERONE
     Indication: HYPOGONADISM
     Dosage: 200 MG , 1 IN 2 WK, INTRAMUSCULAR
     Route: 030
     Dates: start: 201201
  6. RISPERIDONE (RISPERIDONE) (RISPERIDONE) [Concomitant]

REACTIONS (4)
  - Euphoric mood [None]
  - Inappropriate schedule of drug administration [None]
  - Homicide [None]
  - Physical assault [None]

NARRATIVE: CASE EVENT DATE: 201205
